FAERS Safety Report 14444487 (Version 3)
Quarter: 2022Q1

REPORT INFORMATION
  Report Type: Spontaneous
  Country: ES (occurrence: ES)
  Receive Date: 20180126
  Receipt Date: 20220216
  Transmission Date: 20220424
  Serious: Yes (Hospitalization, Other)
  Sender: FDA-Public Use
  Company Number: ES-AUROBINDO-AUR-APL-2018-002778

PATIENT
  Age: 43 Year
  Sex: Male

DRUGS (3)
  1. OMEPRAZOLE [Suspect]
     Active Substance: OMEPRAZOLE
     Indication: Product used for unknown indication
     Dosage: ()
     Route: 065
  2. LORAZEPAM [Concomitant]
     Active Substance: LORAZEPAM
     Indication: Product used for unknown indication
     Dosage: ()
     Route: 065
  3. MIRTAZAPINE [Concomitant]
     Active Substance: MIRTAZAPINE
     Indication: Product used for unknown indication
     Dosage: ()
     Route: 065

REACTIONS (18)
  - Rhabdomyolysis [Recovering/Resolving]
  - Hypomagnesaemia [Recovered/Resolved]
  - Cerebellar ataxia [Recovered/Resolved]
  - Mental disorder [Unknown]
  - Delirium [Unknown]
  - Ataxia [Recovering/Resolving]
  - Nausea [Unknown]
  - Confusional state [Unknown]
  - Dysarthria [Unknown]
  - Tremor [Unknown]
  - Hypocalcaemia [Recovered/Resolved]
  - Eye movement disorder [Unknown]
  - Visual impairment [Unknown]
  - Headache [Unknown]
  - Brain oedema [Unknown]
  - Hyperreflexia [Unknown]
  - Cognitive disorder [Unknown]
  - Asthenia [Unknown]
